FAERS Safety Report 23127541 (Version 1)
Quarter: 2023Q4

REPORT INFORMATION
  Report Type: Spontaneous
  Country: CA (occurrence: CA)
  Receive Date: 20231031
  Receipt Date: 20231031
  Transmission Date: 20240109
  Serious: Yes (Other)
  Sender: FDA-Public Use
  Company Number: CA-MLMSERVICE-20231010-4589370-1

PATIENT

DRUGS (14)
  1. MOXIFLOXACIN HYDROCHLORIDE [Suspect]
     Active Substance: MOXIFLOXACIN HYDROCHLORIDE\MOXIFLOXACIN HYDROCHLORIDE MONOHYDRATE
     Indication: Pneumonia
     Route: 065
     Dates: start: 2017
  2. AMOXICILLIN\CLAVULANIC ACID [Suspect]
     Active Substance: AMOXICILLIN\CLAVULANIC ACID
     Indication: Pneumonia
     Route: 065
     Dates: start: 2018
  3. CEFADROXIL [Suspect]
     Active Substance: CEFADROXIL
     Indication: Cellulitis
     Route: 065
     Dates: start: 2015
  4. LEVOFLOXACIN [Suspect]
     Active Substance: LEVOFLOXACIN
     Indication: Pneumonia
     Route: 065
     Dates: start: 2016
  5. DURVALUMAB [Concomitant]
     Active Substance: DURVALUMAB
     Route: 065
     Dates: start: 2015, end: 2016
  6. DURVALUMAB [Concomitant]
     Active Substance: DURVALUMAB
     Route: 065
     Dates: start: 2016, end: 2017
  7. IPILIMUMAB [Concomitant]
     Active Substance: IPILIMUMAB
     Indication: Disease progression
     Route: 065
     Dates: start: 201812, end: 2019
  8. IPILIMUMAB [Concomitant]
     Active Substance: IPILIMUMAB
  9. IPILIMUMAB [Concomitant]
     Active Substance: IPILIMUMAB
  10. NIVOLUMAB [Concomitant]
     Active Substance: NIVOLUMAB
     Route: 065
     Dates: start: 2018
  11. NIVOLUMAB [Concomitant]
     Active Substance: NIVOLUMAB
     Indication: Disease progression
  12. NIVOLUMAB [Concomitant]
     Active Substance: NIVOLUMAB
  13. TRAMETINIB [Concomitant]
     Active Substance: TRAMETINIB
     Route: 065
     Dates: start: 2016, end: 2017
  14. TRAMETINIB [Concomitant]
     Active Substance: TRAMETINIB
     Route: 065
     Dates: start: 2015, end: 2016

REACTIONS (3)
  - Neoplasm progression [Recovering/Resolving]
  - Metastatic malignant melanoma [Recovering/Resolving]
  - Gastrointestinal disorder [Recovering/Resolving]

NARRATIVE: CASE EVENT DATE: 20210701
